FAERS Safety Report 9758376 (Version 1)
Quarter: 2013Q4

REPORT INFORMATION
  Report Type: Spontaneous
  Country: US (occurrence: None)
  Receive Date: 20131213
  Receipt Date: 20131213
  Transmission Date: 20140711
  Serious: Yes (Other)
  Sender: FDA-Public Use
  Company Number: None

PATIENT
  Age: 68 Year
  Sex: Male
  Weight: 89.5 kg

DRUGS (2)
  1. CARBOPLATIN [Suspect]
  2. TAXOL [Suspect]

REACTIONS (16)
  - Performance status decreased [None]
  - Dehydration [None]
  - Sinus tachycardia [None]
  - Malnutrition [None]
  - Dizziness [None]
  - Dyspnoea [None]
  - Respiratory failure [None]
  - Hyperglycaemia [None]
  - Hypoalbuminaemia [None]
  - Hypocalcaemia [None]
  - Neutropenia [None]
  - Thrombocytopenia [None]
  - Leukopenia [None]
  - Nausea [None]
  - Vomiting [None]
  - Anaemia [None]
